FAERS Safety Report 9226818 (Version 2)
Quarter: 2013Q4

REPORT INFORMATION
  Report Type: Spontaneous
  Country: IT (occurrence: IT)
  Receive Date: 20130412
  Receipt Date: 20131016
  Transmission Date: 20140711
  Serious: Yes (Hospitalization)
  Sender: FDA-Public Use
  Company Number: IT-JNJFOC-20130402746

PATIENT
  Age: 30 Year
  Sex: Male
  Weight: 76 kg

DRUGS (1)
  1. RISPERDAL [Suspect]
     Indication: PRODUCT USED FOR UNKNOWN INDICATION
     Dosage: UNKNOWN DOSAGE OF RISPERIDONE (TABLETS, ORAL, 2 MG
     Route: 048
     Dates: start: 20130402, end: 20130402

REACTIONS (2)
  - Self injurious behaviour [Unknown]
  - Drug abuse [Unknown]
